FAERS Safety Report 7449937-X (Version None)
Quarter: 2011Q2

REPORT INFORMATION
  Report Type: 
  Country: None (occurrence: None)
  Receive Date: 20110502
  Receipt Date: 20110420
  Transmission Date: 20111010
  Serious: Yes (Hospitalization)
  Sender: FDA-Public Use
  Company Number: FR-JNJFOC-20110204965

PATIENT
  Sex: Male
  Weight: 40 kg

DRUGS (1)
  1. CONCERTA [Suspect]
     Indication: PSYCHOMOTOR HYPERACTIVITY
     Dosage: INITIATED ABOUT 3 MONTHS AGO
     Route: 048

REACTIONS (1)
  - MUSCULOSKELETAL CHEST PAIN [None]
